FAERS Safety Report 10335824 (Version 1)
Quarter: 2014Q3

REPORT INFORMATION
  Report Type: Spontaneous
  Country: US (occurrence: US)
  Receive Date: 20140723
  Receipt Date: 20140723
  Transmission Date: 20150326
  Serious: Yes (Hospitalization)
  Sender: FDA-Public Use
  Company Number: US-BRISTOL-MYERS SQUIBB COMPANY-19125285

PATIENT
  Age: 87 Year
  Sex: Female
  Weight: 80.72 kg

DRUGS (12)
  1. FUROSEMIDE. [Concomitant]
     Active Substance: FUROSEMIDE
  2. VITAMIN C [Concomitant]
     Active Substance: ASCORBIC ACID
  3. GLUCOSAMINE [Concomitant]
     Active Substance: GLUCOSAMINE
     Dosage: GLUCOSAMINE CHONDROITIN DAILY
  4. DIGOXIN. [Concomitant]
     Active Substance: DIGOXIN
  5. LANSOPRAZOLE. [Suspect]
     Active Substance: LANSOPRAZOLE
  6. ALLOPURINOL. [Concomitant]
     Active Substance: ALLOPURINOL
     Dosage: EVERY DAY BEFORE NOON?QAM?(1/2 TABLET)EVERY DAY AFTER NOON OR EVERY EVENING
  7. IRON [Concomitant]
     Active Substance: IRON
     Dosage: PILL
  8. LEVOTHYROXINE [Concomitant]
     Active Substance: LEVOTHYROXINE
     Dosage: QAM
  9. CARVEDILOL. [Concomitant]
     Active Substance: CARVEDILOL
  10. CALCIUM + VITAMIN D [Concomitant]
     Active Substance: CALCIUM\VITAMIN D
  11. PROTONIX [Concomitant]
     Active Substance: PANTOPRAZOLE SODIUM
     Dosage: CAPS QAM (BEFORE BREAKFAST)
  12. COUMADIN [Suspect]
     Active Substance: WARFARIN SODIUM

REACTIONS (1)
  - Hypersensitivity [Unknown]
